FAERS Safety Report 14632711 (Version 4)
Quarter: 2018Q1

REPORT INFORMATION
  Report Type: Spontaneous
  Country: US (occurrence: US)
  Receive Date: 20180313
  Receipt Date: 20180328
  Transmission Date: 20180509
  Serious: Yes (Other)
  Sender: FDA-Public Use
  Company Number: US-PFIZER INC-2017166161

PATIENT
  Age: 8 Year
  Sex: Female
  Weight: 35.37 kg

DRUGS (5)
  1. GENOTROPIN MQ [Suspect]
     Active Substance: SOMATROPIN
     Indication: PRADER-WILLI SYNDROME
     Dosage: 0.6 MG, ALTERNATING ONCE A DAY
     Route: 058
     Dates: start: 2008
  2. GENOTROPIN MQ [Suspect]
     Active Substance: SOMATROPIN
     Dosage: 0.8 MG, ALTERNATING ONCE A DAY
     Route: 058
     Dates: start: 2008
  3. GENOTROPIN MQ [Suspect]
     Active Substance: SOMATROPIN
     Dosage: 0.8 MG, DAILY [7 DAYS PER WEEK]
     Dates: start: 200809
  4. GENOTROPIN MQ [Suspect]
     Active Substance: SOMATROPIN
     Dosage: 0.6 MG, DAILY [7 DAYS PER WEEK]
     Dates: start: 200809
  5. GENOTROPIN MQ [Suspect]
     Active Substance: SOMATROPIN
     Dosage: 0.7 MG, DAILY (ALSO REPORTED AS 0.6MG AND 0.8MG)
     Route: 058

REACTIONS (2)
  - Autism spectrum disorder [Not Recovered/Not Resolved]
  - Intentional product misuse [Unknown]

NARRATIVE: CASE EVENT DATE: 2016
